FAERS Safety Report 7520429-2 (Version None)
Quarter: 2011Q2

REPORT INFORMATION
  Report Type: 
  Country: None (occurrence: None)
  Receive Date: 20110602
  Receipt Date: 20110523
  Transmission Date: 20111010
  Serious: Yes (Hospitalization, Other)
  Sender: FDA-Public Use
  Company Number: IN-BAXTER-2011BH017561

PATIENT
  Age: 49 Year
  Sex: Female

DRUGS (2)
  1. PREDNISOLONE [Concomitant]
     Indication: INTERSTITIAL LUNG DISEASE
     Route: 048
  2. CYCLOPHOSPHAMIDE [Suspect]
     Indication: INTERSTITIAL LUNG DISEASE
     Route: 042

REACTIONS (3)
  - OSMOTIC DEMYELINATION SYNDROME [None]
  - INAPPROPRIATE ANTIDIURETIC HORMONE SECRETION [None]
  - GRAND MAL CONVULSION [None]
